FAERS Safety Report 11209736 (Version 1)
Quarter: 2015Q2

REPORT INFORMATION
  Report Type: Spontaneous
  Country: US (occurrence: US)
  Receive Date: 20150622
  Receipt Date: 20150622
  Transmission Date: 20150821
  Serious: Yes (Other)
  Sender: FDA-Public Use
  Company Number: US-ABBVIE-15P-163-1410552-00

PATIENT
  Sex: Female

DRUGS (12)
  1. VALIUM [Suspect]
     Active Substance: DIAZEPAM
     Indication: MOVEMENT DISORDER
  2. LYRICA [Suspect]
     Active Substance: PREGABALIN
     Indication: NEUROPATHY PERIPHERAL
  3. LYRICA [Suspect]
     Active Substance: PREGABALIN
     Indication: FIBROMYALGIA
     Route: 065
  4. LYRICA [Suspect]
     Active Substance: PREGABALIN
     Indication: NERVE INJURY
  5. VICODIN [Suspect]
     Active Substance: ACETAMINOPHEN\HYDROCODONE BITARTRATE
     Indication: WITHDRAWAL SYNDROME
     Route: 065
  6. VALIUM [Suspect]
     Active Substance: DIAZEPAM
     Indication: PROPHYLAXIS
  7. VICODIN [Suspect]
     Active Substance: ACETAMINOPHEN\HYDROCODONE BITARTRATE
     Indication: ADVERSE DRUG REACTION
  8. LYRICA [Suspect]
     Active Substance: PREGABALIN
     Indication: DYSTONIA
  9. VICODIN [Suspect]
     Active Substance: ACETAMINOPHEN\HYDROCODONE BITARTRATE
     Indication: PROPHYLAXIS
  10. VICODIN [Suspect]
     Active Substance: ACETAMINOPHEN\HYDROCODONE BITARTRATE
     Indication: MOVEMENT DISORDER
  11. VALIUM [Suspect]
     Active Substance: DIAZEPAM
     Indication: WITHDRAWAL SYNDROME
     Route: 065
  12. VALIUM [Suspect]
     Active Substance: DIAZEPAM
     Indication: ADVERSE DRUG REACTION

REACTIONS (22)
  - Spinal fracture [Unknown]
  - Movement disorder [Unknown]
  - Neuropathy peripheral [Unknown]
  - Physical disability [Unknown]
  - Seizure [Unknown]
  - Fibromyalgia [Unknown]
  - Cerebral disorder [Unknown]
  - Drug withdrawal syndrome [Recovering/Resolving]
  - Drug effect incomplete [Unknown]
  - Heart rate increased [Unknown]
  - Incorrect dose administered [Unknown]
  - Emotional disorder [Unknown]
  - Drug dose omission [Unknown]
  - Suicidal ideation [Unknown]
  - Drug dependence [Unknown]
  - Family stress [Unknown]
  - Generalised tonic-clonic seizure [Unknown]
  - Headache [Unknown]
  - Hypertension [Unknown]
  - Myalgia [Unknown]
  - Nerve injury [Unknown]
  - Dystonia [Unknown]
